FAERS Safety Report 21209110 (Version 1)
Quarter: 2022Q3

REPORT INFORMATION
  Report Type: Spontaneous
  Country: KR (occurrence: None)
  Receive Date: 20220812
  Receipt Date: 20220812
  Transmission Date: 20221027
  Serious: Yes (Other)
  Sender: FDA-Public Use
  Company Number: 2022A283478

PATIENT

DRUGS (2)
  1. DURVALUMAB [Suspect]
     Active Substance: DURVALUMAB
     Route: 042
     Dates: start: 20190220, end: 20200115
  2. CARBO-TAXOL [Concomitant]
     Dates: start: 20181206, end: 20190123

REACTIONS (7)
  - Malignant neoplasm progression [Unknown]
  - Hepatitis [Unknown]
  - Radiation pneumonitis [Unknown]
  - Delirium [Unknown]
  - Psychotic disorder [Unknown]
  - Myopathy [Unknown]
  - Asthenia [Unknown]

NARRATIVE: CASE EVENT DATE: 20190301
